FAERS Safety Report 15994018 (Version 1)
Quarter: 2019Q1

REPORT INFORMATION
  Report Type: Spontaneous
  Country: US (occurrence: US)
  Receive Date: 20190222
  Receipt Date: 20190222
  Transmission Date: 20190418
  Serious: No
  Sender: FDA-Public Use
  Company Number: US-ASTRAZENECA-2019SE17066

PATIENT

DRUGS (1)
  1. FASENRA [Suspect]
     Active Substance: BENRALIZUMAB
     Dosage: PRESCRIBED FASENRA ONCE A MONTH FOR 3 MONTHS AS OF THE SECOND WEEK OF JANUARY 2019
     Route: 058

REACTIONS (1)
  - Abdominal pain [Unknown]
